FAERS Safety Report 8910944 (Version 3)
Quarter: 2013Q1

REPORT INFORMATION
  Report Type: Spontaneous
  Country: US (occurrence: US)
  Receive Date: 20121116
  Receipt Date: 20130108
  Transmission Date: 20140127
  Serious: No
  Sender: FDA-Public Use
  Company Number: US-BAYER-2012-120055

PATIENT
  Age: 33 Year
  Sex: Male

DRUGS (3)
  1. ULTRAVIST [Suspect]
     Indication: COMPUTERISED TOMOGRAM ABDOMEN
     Dosage: 100 ML, ONCE
     Dates: start: 20121106, end: 20121106
  2. ULTRAVIST [Suspect]
     Indication: CONSTIPATION
  3. ULTRAVIST [Suspect]
     Indication: ABDOMINAL PAIN

REACTIONS (3)
  - Ear pruritus [Recovered/Resolved]
  - Dysphonia [Recovered/Resolved]
  - Ear discomfort [Recovered/Resolved]
